FAERS Safety Report 16744709 (Version 2)
Quarter: 2019Q3

REPORT INFORMATION
  Report Type: Spontaneous
  Country: CA (occurrence: CA)
  Receive Date: 20190827
  Receipt Date: 20190830
  Transmission Date: 20191005
  Serious: Yes (Disabling)
  Sender: FDA-Public Use
  Company Number: CA-PFIZER INC-2019324489

PATIENT
  Sex: Female

DRUGS (6)
  1. TOPAMAX [Concomitant]
     Active Substance: TOPIRAMATE
     Indication: MIGRAINE
     Dosage: 100 MG, HS(HOURS OF SLEEP)
     Route: 048
     Dates: start: 201208
  2. SEROQUEL [Concomitant]
     Active Substance: QUETIAPINE FUMARATE
     Indication: POST-TRAUMATIC STRESS DISORDER
  3. SEROQUEL [Concomitant]
     Active Substance: QUETIAPINE FUMARATE
     Indication: DEPRESSION
     Dosage: 25 MG, EVERY HS(HOURS OF SLEEP)
     Route: 048
     Dates: start: 20190129
  4. DESVENLAFAXINE. [Suspect]
     Active Substance: DESVENLAFAXINE
     Indication: DEPRESSION
     Dosage: 150 MG, UNK
     Route: 048
     Dates: start: 201811, end: 201905
  5. SEROQUEL XR [Concomitant]
     Active Substance: QUETIAPINE FUMARATE
     Indication: POST-TRAUMATIC STRESS DISORDER
  6. SEROQUEL XR [Concomitant]
     Active Substance: QUETIAPINE FUMARATE
     Indication: DEPRESSION
     Dosage: 50 MG, DAILY
     Route: 048
     Dates: start: 20121102, end: 20190120

REACTIONS (7)
  - Drug ineffective [Recovering/Resolving]
  - Anxiety [Recovering/Resolving]
  - Disease recurrence [Recovering/Resolving]
  - Loss of personal independence in daily activities [Unknown]
  - Product dispensing error [Unknown]
  - Malaise [Unknown]
  - Post-traumatic stress disorder [Recovering/Resolving]
